FAERS Safety Report 23718165 (Version 1)
Quarter: 2024Q2

REPORT INFORMATION
  Report Type: Spontaneous
  Country: US (occurrence: US)
  Receive Date: 20240408
  Receipt Date: 20240408
  Transmission Date: 20240716
  Serious: Yes (Other)
  Sender: FDA-Public Use
  Company Number: US-EPICPHARMA-US-2024EPCLIT00337

PATIENT
  Age: 74 Year
  Sex: Female

DRUGS (2)
  1. CLINDAMYCIN HYDROCHLORIDE [Suspect]
     Active Substance: CLINDAMYCIN HYDROCHLORIDE
     Indication: Eye infection toxoplasmal
     Dosage: 1.0MG IN 0.1ML
     Route: 035
  2. PREDNISOLONE ACETATE [Concomitant]
     Active Substance: PREDNISOLONE ACETATE
     Indication: Eye infection toxoplasmal
     Route: 065

REACTIONS (2)
  - Retinopathy [Unknown]
  - Product use in unapproved indication [Unknown]
